FAERS Safety Report 19225225 (Version 3)
Quarter: 2021Q2

REPORT INFORMATION
  Report Type: Spontaneous
  Country: US (occurrence: US)
  Receive Date: 20210506
  Receipt Date: 20210622
  Transmission Date: 20210717
  Serious: No
  Sender: FDA-Public Use
  Company Number: US-PFIZER INC-2021206009

PATIENT
  Age: 61 Year
  Sex: Female
  Weight: 63.5 kg

DRUGS (2)
  1. NARDIL [Suspect]
     Active Substance: PHENELZINE SULFATE
     Indication: MAJOR DEPRESSION
     Dosage: 15 MG
  2. NARDIL [Suspect]
     Active Substance: PHENELZINE SULFATE
     Indication: SOCIAL ANXIETY DISORDER
     Dosage: 45 MG, 1X/DAY
     Route: 048

REACTIONS (9)
  - Weight decreased [Unknown]
  - Asthenia [Unknown]
  - Malaise [Unknown]
  - Feeling abnormal [Unknown]
  - Intentional product use issue [Unknown]
  - Withdrawal syndrome [Unknown]
  - Impatience [Unknown]
  - Decreased appetite [Unknown]
  - Insomnia [Unknown]

NARRATIVE: CASE EVENT DATE: 202006
